FAERS Safety Report 7875137-5 (Version None)
Quarter: 2011Q4

REPORT INFORMATION
  Report Type: 
  Country: None (occurrence: None)
  Receive Date: 20111031
  Receipt Date: 20111017
  Transmission Date: 20120403
  Serious: No
  Sender: FDA-Public Use
  Company Number: US-BIOGENIDEC-2011BI039688

PATIENT
  Age: 35 Year
  Sex: Female

DRUGS (7)
  1. AVONEX [Suspect]
     Indication: MULTIPLE SCLEROSIS
     Route: 030
     Dates: start: 20110927
  2. AVONEX [Suspect]
     Route: 030
  3. AVONEX [Suspect]
     Route: 030
     Dates: start: 20111016
  4. IBUPROFEN (ADVIL) [Concomitant]
     Indication: PRODUCT USED FOR UNKNOWN INDICATION
  5. CELEXA [Concomitant]
     Indication: DEPRESSION
     Dates: start: 20080101
  6. AVONEX [Suspect]
     Route: 030
  7. KEPPRA [Concomitant]
     Indication: EPILEPSY
     Dates: start: 20100101

REACTIONS (8)
  - MUSCLE SPASMS [None]
  - CONTUSION [None]
  - HEAT RASH [None]
  - DEPRESSION [None]
  - PAIN IN EXTREMITY [None]
  - NASAL CONGESTION [None]
  - HEADACHE [None]
  - PYREXIA [None]
